FAERS Safety Report 5813067-0 (Version None)
Quarter: 2008Q3

REPORT INFORMATION
  Report Type: 
  Country: None (occurrence: None)
  Receive Date: 20080717
  Receipt Date: 20071206
  Transmission Date: 20090109
  Serious: No
  Sender: FDA-Public Use
  Company Number: A0697627A

PATIENT
  Age: 30 Year
  Sex: Male

DRUGS (1)
  1. NICORETTE [Suspect]
     Dates: start: 20071204

REACTIONS (3)
  - HYPOAESTHESIA ORAL [None]
  - OROPHARYNGEAL PAIN [None]
  - SPEECH DISORDER [None]
